FAERS Safety Report 6045601-2 (Version None)
Quarter: 2009Q1

REPORT INFORMATION
  Report Type: 
  Country: None (occurrence: None)
  Receive Date: 20090121
  Receipt Date: 20090116
  Transmission Date: 20090719
  Serious: Yes (Death, Hospitalization)
  Sender: FDA-Public Use
  Company Number: PH-BAXTER-2009BH000258

PATIENT
  Age: 62 Year
  Sex: Female

DRUGS (1)
  1. DIANEAL [Suspect]
     Indication: RENAL DISORDER
     Route: 033
     Dates: start: 20071208

REACTIONS (4)
  - CARDIO-RESPIRATORY ARREST [None]
  - DIABETES MELLITUS [None]
  - INTRACRANIAL ANEURYSM [None]
  - RENAL FAILURE CHRONIC [None]
